FAERS Safety Report 19788452 (Version 2)
Quarter: 2022Q1

REPORT INFORMATION
  Report Type: Report from Study
  Country: US (occurrence: US)
  Receive Date: 20210903
  Receipt Date: 20220114
  Transmission Date: 20220423
  Serious: Yes (Other)
  Sender: FDA-Public Use
  Company Number: US-REGENERON PHARMACEUTICALS, INC.-2021-81090

PATIENT
  Age: 29 Year
  Sex: Female

DRUGS (2)
  1. CASIRIVIMAB\IMDEVIMAB [Suspect]
     Active Substance: CASIRIVIMAB\IMDEVIMAB
     Indication: COVID-19
     Dosage: 1200 MG, SINGLE
     Route: 042
     Dates: start: 20210827, end: 20210827
  2. SODIUM CHLORIDE [Concomitant]
     Active Substance: SODIUM CHLORIDE
     Indication: COVID-19
     Dosage: 100 ML, 0.9%, SINGLE DOSE
     Route: 042
     Dates: start: 20210827, end: 20210827

REACTIONS (3)
  - Erythema [Recovering/Resolving]
  - Nausea [Recovering/Resolving]
  - Bronchospasm [Unknown]

NARRATIVE: CASE EVENT DATE: 20210827
